FAERS Safety Report 6625475-9 (Version None)
Quarter: 2010Q1

REPORT INFORMATION
  Report Type: 
  Country: None (occurrence: None)
  Receive Date: 20100310
  Receipt Date: 20090901
  Transmission Date: 20100710
  Serious: No
  Sender: FDA-Public Use
  Company Number: US-BIOGENIDEC-2009BI027528

PATIENT
  Age: 58 Year
  Sex: Female

DRUGS (3)
  1. AVONEX [Suspect]
     Indication: MULTIPLE SCLEROSIS
     Route: 030
     Dates: start: 20010713, end: 20070816
  2. AVONEX [Suspect]
     Route: 030
     Dates: start: 20080321, end: 20090102
  3. AVONEX [Suspect]
     Route: 030
     Dates: start: 20090805

REACTIONS (4)
  - ASTHENIA [None]
  - GAIT DISTURBANCE [None]
  - PAIN [None]
  - STRESS [None]
